FAERS Safety Report 8071510-3 (Version None)
Quarter: 2012Q1

REPORT INFORMATION
  Report Type: 
  Country: None (occurrence: None)
  Receive Date: 20120125
  Receipt Date: 20120118
  Transmission Date: 20120608
  Serious: Yes (Hospitalization)
  Sender: FDA-Public Use
  Company Number: CH-ASTRAZENECA-2012SE04203

PATIENT
  Age: 17 Year
  Sex: Male

DRUGS (7)
  1. SOLIAN [Suspect]
     Route: 048
     Dates: start: 20111202, end: 20111208
  2. SEROQUEL XR [Suspect]
     Route: 048
     Dates: start: 20111003, end: 20111202
  3. ESCITALOPRAM [Suspect]
     Route: 048
     Dates: start: 20111129, end: 20111208
  4. ESCITALOPRAM [Suspect]
     Route: 048
     Dates: start: 20111209
  5. SOLIAN [Suspect]
     Route: 048
     Dates: start: 20111209, end: 20111212
  6. SOLIAN [Suspect]
     Route: 048
     Dates: start: 20111201
  7. SEROQUEL XR [Suspect]
     Route: 048
     Dates: end: 20111002

REACTIONS (6)
  - DRUG EFFECT DECREASED [None]
  - NAUSEA [None]
  - DECREASED APPETITE [None]
  - MALAISE [None]
  - APATHY [None]
  - VOMITING [None]
